FAERS Safety Report 10949609 (Version 1)
Quarter: 2015Q1

REPORT INFORMATION
  Report Type: Spontaneous
  Country: US (occurrence: US)
  Receive Date: 20150324
  Receipt Date: 20150324
  Transmission Date: 20150721
  Serious: No
  Sender: FDA-Public Use
  Company Number: US-BAYER-2015-061572

PATIENT
  Age: 19 Year
  Sex: Female

DRUGS (2)
  1. SKYLA [Suspect]
     Active Substance: LEVONORGESTREL
     Dosage: UNK, CONT
     Route: 015
     Dates: start: 20140807, end: 20141216
  2. SKYLA [Suspect]
     Active Substance: LEVONORGESTREL
     Dosage: UNK, CONT
     Route: 015
     Dates: start: 20141216, end: 20150313

REACTIONS (1)
  - Device expulsion [Recovered/Resolved]
